FAERS Safety Report 4508710-2 (Version None)
Quarter: 2004Q4

REPORT INFORMATION
  Report Type: 
  Country: None (occurrence: None)
  Receive Date: 20041122
  Receipt Date: 20041122
  Transmission Date: 20050328
  Serious: Yes (Death)
  Sender: FDA-Public Use
  Company Number: None

PATIENT
  Age: 39 Year
  Sex: Female
  Weight: 39.5 kg

DRUGS (3)
  1. CYTOXAN [Suspect]
     Indication: HIV INFECTION
     Dosage: 350MG TOTAL DOSE
     Dates: start: 20040729, end: 20040801
  2. PROCARBAZINE [Suspect]
     Indication: NON-HODGKIN'S LYMPHOMA
     Dosage: 350MG TOTAL DOSE
  3. ANTI RETRO VIRAL [Concomitant]

REACTIONS (7)
  - DEHYDRATION [None]
  - DEPRESSED LEVEL OF CONSCIOUSNESS [None]
  - DIARRHOEA [None]
  - PLATELET COUNT DECREASED [None]
  - SHOCK [None]
  - VOMITING [None]
  - WHITE BLOOD CELL COUNT DECREASED [None]
